FAERS Safety Report 12647760 (Version 1)
Quarter: 2016Q3

REPORT INFORMATION
  Report Type: Report from Study
  Country: CO (occurrence: CO)
  Receive Date: 20160812
  Receipt Date: 20160812
  Transmission Date: 20161109
  Serious: Yes (Hospitalization)
  Sender: FDA-Public Use
  Company Number: PHHY2016CO109154

PATIENT
  Sex: Male
  Weight: 76 kg

DRUGS (1)
  1. TASIGNA [Suspect]
     Active Substance: NILOTINIB
     Indication: CHRONIC MYELOID LEUKAEMIA
     Dosage: 200 MG, QID (FOUR TIMES A DAY)
     Route: 048
     Dates: start: 20160118, end: 20160719

REACTIONS (9)
  - Malignant neoplasm progression [Unknown]
  - Chronic myeloid leukaemia [Unknown]
  - Petechiae [Unknown]
  - Epistaxis [Unknown]
  - Gingival bleeding [Unknown]
  - Contusion [Unknown]
  - Blast crisis in myelogenous leukaemia [Unknown]
  - Incorrect drug administration duration [Unknown]
  - Drug ineffective [Unknown]
